FAERS Safety Report 17345617 (Version 1)
Quarter: 2020Q1

REPORT INFORMATION
  Report Type: Spontaneous
  Country: CA (occurrence: CA)
  Receive Date: 20200129
  Receipt Date: 20200129
  Transmission Date: 20200409
  Serious: Yes (Other)
  Sender: FDA-Public Use
  Company Number: CA-TEVA-2020-CA-1176464

PATIENT
  Age: 70 Year
  Sex: Male

DRUGS (3)
  1. QUETIAPINE FUMARATE. [Suspect]
     Active Substance: QUETIAPINE FUMARATE
     Route: 048
  2. QUETIAPINE FUMARATE. [Suspect]
     Active Substance: QUETIAPINE FUMARATE
     Indication: DEPRESSION
     Route: 065
  3. LEVODOPA [Concomitant]
     Active Substance: LEVODOPA

REACTIONS (11)
  - Catatonia [Unknown]
  - Hyperhidrosis [Unknown]
  - Musculoskeletal stiffness [Unknown]
  - Anxiety [Unknown]
  - Dyspnoea [Unknown]
  - Heart rate irregular [Unknown]
  - Cold sweat [Unknown]
  - Urinary retention [Unknown]
  - Dysstasia [Unknown]
  - Speech disorder [Unknown]
  - Syncope [Unknown]
